FAERS Safety Report 17451816 (Version 1)
Quarter: 2020Q1

REPORT INFORMATION
  Report Type: Spontaneous
  Country: US (occurrence: US)
  Receive Date: 20200224
  Receipt Date: 20200224
  Transmission Date: 20200409
  Serious: Yes (Other)
  Sender: FDA-Public Use
  Company Number: US-PFIZER INC-2019467384

PATIENT
  Age: 64 Year
  Sex: Male
  Weight: 97.52 kg

DRUGS (2)
  1. VYNDAQEL [Suspect]
     Active Substance: TAFAMIDIS MEGLUMINE
     Indication: CARDIAC AMYLOIDOSIS
     Dosage: 20 MG, 1X/DAY
     Dates: start: 201906, end: 20191026
  2. VYNDAQEL [Suspect]
     Active Substance: TAFAMIDIS MEGLUMINE
     Dosage: 80 MG, UNK

REACTIONS (17)
  - Back pain [Not Recovered/Not Resolved]
  - Dysstasia [Unknown]
  - Diarrhoea [Not Recovered/Not Resolved]
  - Nasal congestion [Unknown]
  - Angioedema [Unknown]
  - Gait disturbance [Unknown]
  - Oedema peripheral [Unknown]
  - Arthralgia [Unknown]
  - Paranasal sinus hypersecretion [Not Recovered/Not Resolved]
  - Skin lesion [Unknown]
  - Hypoaesthesia [Unknown]
  - Cough [Unknown]
  - Dizziness [Unknown]
  - Paraesthesia [Unknown]
  - Asthenia [Unknown]
  - Neuropathy peripheral [Unknown]
  - Nocturia [Unknown]
